FAERS Safety Report 16824295 (Version 1)
Quarter: 2019Q3

REPORT INFORMATION
  Report Type: Spontaneous
  Country: SE (occurrence: SE)
  Receive Date: 20190918
  Receipt Date: 20190918
  Transmission Date: 20191005
  Serious: Yes (Other)
  Sender: FDA-Public Use
  Company Number: SE-MYLANLABS-2019M1086540

PATIENT
  Age: 55 Year
  Sex: Male

DRUGS (1)
  1. METFORMIN MEDA 500 MG FILMDRAGERADE TABLETTER [Suspect]
     Active Substance: METFORMIN HYDROCHLORIDE
     Indication: TYPE 2 DIABETES MELLITUS
     Dosage: 500 MG 500 MG 2 + 2
     Route: 048
     Dates: start: 201901, end: 201902

REACTIONS (5)
  - Erysipelas [Recovered/Resolved]
  - Product odour abnormal [Recovered/Resolved]
  - Product taste abnormal [Recovered/Resolved]
  - Peripheral swelling [Recovered/Resolved]
  - Malaise [Recovered/Resolved]

NARRATIVE: CASE EVENT DATE: 201901
